FAERS Safety Report 19455434 (Version 5)
Quarter: 2022Q3

REPORT INFORMATION
  Report Type: Report from Study
  Country: US (occurrence: US)
  Receive Date: 20210623
  Receipt Date: 20220803
  Transmission Date: 20221027
  Serious: Yes (Life-Threatening, Hospitalization, Other)
  Sender: FDA-Public Use
  Company Number: US-BAXTER-2021BAX016777

PATIENT
  Age: 16 Year
  Sex: Male
  Weight: 88.7 kg

DRUGS (12)
  1. IFOSFAMIDE [Suspect]
     Active Substance: IFOSFAMIDE
     Indication: Osteosarcoma metastatic
     Dosage: 5880 MG, CYCLICAL, IV NOS, DAY 1-3 OF EVERY 21 DAY CYCLE,
     Route: 042
     Dates: start: 20210319, end: 20210321
  2. IFOSFAMIDE [Suspect]
     Active Substance: IFOSFAMIDE
     Dosage: CYCLE 2, CYCLICAL
     Route: 042
     Dates: start: 20210408, end: 20210410
  3. IFOSFAMIDE [Suspect]
     Active Substance: IFOSFAMIDE
     Dosage: CYCLE, CYCLICAL
     Route: 042
     Dates: start: 20210602, end: 20210604
  4. IFOSFAMIDE [Suspect]
     Active Substance: IFOSFAMIDE
     Dosage: FIFTH ROUND, 4704 MG, CYCLICAL
     Route: 042
     Dates: start: 20210721, end: 20210723
  5. MESNA [Suspect]
     Active Substance: MESNA
     Indication: Product used for unknown indication
     Dosage: 1180 MILLIGRAM,QD, IV NOS
     Route: 042
     Dates: start: 20210319, end: 20210319
  6. MESNA [Suspect]
     Active Substance: MESNA
     Dosage: 1180 MILLIGRAM,QD, IV NOS
     Route: 042
     Dates: start: 20210508, end: 20210510
  7. MESNA [Suspect]
     Active Substance: MESNA
     Dosage: 1180 MILLIGRAM,PRN
     Route: 042
     Dates: start: 20210602
  8. ETOPOSIDE [Suspect]
     Active Substance: ETOPOSIDE
     Indication: Osteosarcoma metastatic
     Dosage: 196 MG/M2, IV NOS DAY 1-3 OF EVERY 21 DAY CYCLE
     Route: 042
     Dates: start: 20210318, end: 20210320
  9. ETOPOSIDE [Suspect]
     Active Substance: ETOPOSIDE
     Dosage: CYCLE 2
     Route: 042
     Dates: start: 20210408, end: 20210410
  10. ETOPOSIDE [Suspect]
     Active Substance: ETOPOSIDE
     Dosage: CYCLE
     Route: 042
     Dates: start: 20210602, end: 20210604
  11. ETOPOSIDE [Suspect]
     Active Substance: ETOPOSIDE
     Dosage: FIFTH ROUND, 156.8 MG, CYCLICAL, IV NOS
     Route: 042
     Dates: start: 20210721, end: 20210723
  12. PEGFILGRASTIM [Concomitant]
     Active Substance: PEGFILGRASTIM
     Indication: White blood cell count decreased
     Dosage: 6 MILLIGRAM,QD
     Route: 058
     Dates: start: 20210323, end: 20210323

REACTIONS (20)
  - Febrile neutropenia [Recovered/Resolved]
  - Febrile neutropenia [Recovered/Resolved]
  - Febrile neutropenia [Not Recovered/Not Resolved]
  - Sepsis [Recovered/Resolved]
  - Wound infection staphylococcal [Recovered/Resolved]
  - Bacteraemia [Recovered/Resolved]
  - Neutrophil count decreased [Recovered/Resolved]
  - Neutrophil count decreased [Recovered/Resolved]
  - Platelet count decreased [Recovered/Resolved]
  - White blood cell count decreased [Recovered/Resolved]
  - Anaemia [Recovered/Resolved]
  - Pyrexia [Recovered/Resolved]
  - Pyrexia [Recovered/Resolved]
  - Anaemia [Recovered/Resolved]
  - White blood cell count decreased [Recovered/Resolved]
  - Platelet count decreased [Not Recovered/Not Resolved]
  - White blood cell count decreased [Not Recovered/Not Resolved]
  - Platelet count decreased [Not Recovered/Not Resolved]
  - Anaemia [Not Recovered/Not Resolved]
  - Hypotension [Recovered/Resolved]

NARRATIVE: CASE EVENT DATE: 20210327
